FAERS Safety Report 20503697 (Version 1)
Quarter: 2022Q1

REPORT INFORMATION
  Report Type: Spontaneous
  Country: US (occurrence: None)
  Receive Date: 20220221
  Receipt Date: 20220221
  Transmission Date: 20220423
  Serious: No
  Sender: FDA-Public Use
  Company Number: None

PATIENT
  Age: 37 Year
  Sex: Female
  Weight: 94.5 kg

DRUGS (1)
  1. NEUTROGENA ULTRA SHEER BODY MIST SUNSCREEN BROAD SPECTRUM SPF 70 [Suspect]
     Active Substance: AVOBENZONE\HOMOSALATE\OCTISALATE\OCTOCRYLENE\OXYBENZONE
     Indication: Prophylaxis against solar radiation
     Dosage: OTHER STRENGTH : SPF;?OTHER QUANTITY : 1 SPRAY(S);?
     Route: 061
     Dates: start: 20220215, end: 20220216

REACTIONS (2)
  - Rash pruritic [None]
  - Rash papular [None]

NARRATIVE: CASE EVENT DATE: 20220215
